FAERS Safety Report 6227214-2 (Version None)
Quarter: 2009Q2

REPORT INFORMATION
  Report Type: 
  Country: None (occurrence: None)
  Receive Date: 20090612
  Receipt Date: 20090529
  Transmission Date: 20091009
  Serious: No
  Sender: FDA-Public Use
  Company Number: US-ABBOTT-09P-163-0577011-00

PATIENT
  Sex: Male

DRUGS (5)
  1. HUMIRA [Suspect]
     Indication: PSORIASIS
     Route: 058
     Dates: start: 20090504
  2. TOPICAL CREAMS [Concomitant]
     Indication: PSORIASIS
     Dosage: UNKNOWN
  3. MIGRANAL [Concomitant]
     Indication: MIGRAINE
     Dosage: UNKNOWN
     Route: 045
  4. DURAGESIC-100 [Concomitant]
     Indication: MIGRAINE
     Dosage: PATCH
     Route: 062
  5. CORGARD [Concomitant]
     Indication: BLOOD CHOLESTEROL INCREASED
     Dosage: UNKNOWN
     Route: 048

REACTIONS (2)
  - INJECTION SITE IRRITATION [None]
  - UNDERDOSE [None]
